FAERS Safety Report 5762756-5 (Version None)
Quarter: 2008Q2

REPORT INFORMATION
  Report Type: 
  Country: None (occurrence: None)
  Receive Date: 20080609
  Receipt Date: 20080605
  Transmission Date: 20081010
  Serious: Yes (Death)
  Sender: FDA-Public Use
  Company Number: GB-ASTRAZENECA-2008GB01038

PATIENT
  Age: 36 Year
  Sex: Male

DRUGS (3)
  1. SEROQUEL [Suspect]
     Dosage: 150 MG MORNING, 250 MG AT NIGHT
     Route: 048
     Dates: start: 20070601
  2. SEROQUEL [Suspect]
     Dosage: 34.07 UG/ML OVERDOSE
     Route: 048
     Dates: start: 20071201, end: 20071201
  3. ACETAMINOPHEN [Suspect]
     Dosage: 103
     Route: 065
     Dates: start: 20071201, end: 20071201

REACTIONS (1)
  - DRUG TOXICITY [None]
